FAERS Safety Report 16298314 (Version 1)
Quarter: 2019Q2

REPORT INFORMATION
  Report Type: Spontaneous
  Country: BR (occurrence: BR)
  Receive Date: 20190510
  Receipt Date: 20190510
  Transmission Date: 20190711
  Serious: Yes (Other)
  Sender: FDA-Public Use
  Company Number: BR-GLAXOSMITHKLINE-BR2019GSK053780

PATIENT
  Sex: Male
  Weight: 69 kg

DRUGS (1)
  1. NUCALA [Suspect]
     Active Substance: MEPOLIZUMAB
     Indication: ASTHMA
     Dosage: 100 MG, Z
     Dates: start: 20190214

REACTIONS (13)
  - Product dose omission [Unknown]
  - Dizziness postural [Recovering/Resolving]
  - Dizziness [Recovering/Resolving]
  - Condition aggravated [Unknown]
  - Syncope [Unknown]
  - Malaise [Recovering/Resolving]
  - Weight decreased [Unknown]
  - Visual impairment [Unknown]
  - Head discomfort [Unknown]
  - Dyspnoea [Recovering/Resolving]
  - Muscular weakness [Unknown]
  - Headache [Unknown]
  - Gait inability [Unknown]
